FAERS Safety Report 11556699 (Version 5)
Quarter: 2016Q1

REPORT INFORMATION
  Report Type: Spontaneous
  Country: US (occurrence: US)
  Receive Date: 20150925
  Receipt Date: 20160217
  Transmission Date: 20160525
  Serious: Yes (Death, Hospitalization)
  Sender: FDA-Public Use
  Company Number: US-ACTELION-A-NJ2015-124348

PATIENT
  Age: 23 Year
  Sex: Female

DRUGS (13)
  1. NYSTATIN. [Concomitant]
     Active Substance: NYSTATIN
  2. LORATADINE. [Concomitant]
     Active Substance: LORATADINE
  3. BUTALBITAL AND ACETAMINOPHEN [Concomitant]
     Active Substance: ACETAMINOPHEN\BUTALBITAL
  4. HYDROXYCHLOROQUINE [Concomitant]
     Active Substance: HYDROXYCHLOROQUINE
  5. BACLOFEN. [Concomitant]
     Active Substance: BACLOFEN
  6. VELETRI [Suspect]
     Active Substance: EPOPROSTENOL
     Indication: PULMONARY ARTERIAL HYPERTENSION
     Dosage: 42.5 NG/KG, PER MIN
     Route: 042
     Dates: start: 201501, end: 20151217
  7. NITROBID [Concomitant]
  8. SPIRONOLACTONE. [Concomitant]
     Active Substance: SPIRONOLACTONE
  9. MELATONIN [Concomitant]
     Active Substance: MELATONIN
  10. PREDNISONE. [Concomitant]
     Active Substance: PREDNISONE
  11. OXYCONTIN [Concomitant]
     Active Substance: OXYCODONE HYDROCHLORIDE
  12. FAMOTIDINE. [Concomitant]
     Active Substance: FAMOTIDINE
  13. LASIX [Concomitant]
     Active Substance: FUROSEMIDE

REACTIONS (7)
  - Pancreatitis relapsing [Fatal]
  - Condition aggravated [Fatal]
  - Pulmonary arterial hypertension [Fatal]
  - Disease progression [Fatal]
  - Abdominal pain [Recovered/Resolved]
  - Pancreatitis acute [Recovered/Resolved]
  - Vomiting [Recovered/Resolved]

NARRATIVE: CASE EVENT DATE: 20150915
